FAERS Safety Report 6414813-8 (Version None)
Quarter: 2009Q4

REPORT INFORMATION
  Report Type: 
  Country: None (occurrence: None)
  Receive Date: 20091026
  Receipt Date: 20090108
  Transmission Date: 20100525
  Serious: No
  Sender: FDA-Public Use
  Company Number: US-ABBOTT-08P-163-0475356-00

PATIENT
  Sex: Female

DRUGS (4)
  1. LUPRON DEPOT [Suspect]
     Indication: ENDOMETRIOSIS
     Dosage: Q MONTH TIMES 3 MONTHS
     Route: 050
     Dates: start: 20060301, end: 20080501
  2. LUPRON DEPOT [Suspect]
     Route: 050
     Dates: start: 20060611, end: 20060611
  3. LUPRON DEPOT [Suspect]
     Route: 050
     Dates: start: 20080411, end: 20080529
  4. YAZ [Concomitant]
     Indication: CONTRACEPTION
     Route: 048

REACTIONS (5)
  - ABDOMINAL PAIN [None]
  - DYSMENORRHOEA [None]
  - HEADACHE [None]
  - HOT FLUSH [None]
  - RASH [None]
